FAERS Safety Report 6215935-7 (Version None)
Quarter: 2009Q2

REPORT INFORMATION
  Report Type: 
  Country: None (occurrence: None)
  Receive Date: 20090605
  Receipt Date: 20090527
  Transmission Date: 20091009
  Serious: Yes (Other)
  Sender: FDA-Public Use
  Company Number: US-BAYER-200918680NA

PATIENT
  Age: 55 Year
  Sex: Male
  Weight: 95 kg

DRUGS (10)
  1. MAGNEVIST [Suspect]
     Indication: NUCLEAR MAGNETIC RESONANCE IMAGING
  2. OMNISCAN [Suspect]
     Indication: NUCLEAR MAGNETIC RESONANCE IMAGING
  3. OPTIMARK [Suspect]
     Indication: NUCLEAR MAGNETIC RESONANCE IMAGING
  4. MULTIHANCE [Suspect]
     Indication: NUCLEAR MAGNETIC RESONANCE IMAGING
  5. PROHANCE [Suspect]
     Indication: NUCLEAR MAGNETIC RESONANCE IMAGING
  6. VISIPAQUE [Concomitant]
     Indication: ARTERIOGRAM CORONARY
     Dates: start: 20051006, end: 20051006
  7. ASPIRIN [Concomitant]
  8. HEPARIN [Concomitant]
  9. BETA-BLOCKER [Concomitant]
  10. STATIN [Concomitant]

REACTIONS (4)
  - ANXIETY [None]
  - FIBROSIS [None]
  - NEPHROGENIC SYSTEMIC FIBROSIS [None]
  - PAIN [None]
